FAERS Safety Report 4881231-3 (Version None)
Quarter: 2006Q1

REPORT INFORMATION
  Report Type: 
  Country: None (occurrence: None)
  Receive Date: 20060116
  Receipt Date: 20060104
  Transmission Date: 20060701
  Serious: Yes (Other)
  Sender: FDA-Public Use
  Company Number: JP-JNJFOC-20060102103

PATIENT
  Age: 63 Year
  Sex: Male

DRUGS (4)
  1. DUROTEP [Suspect]
     Dosage: HALF OF 2.5 MG PATCH SURFACE AREA WAS COVERED
     Route: 062
  2. DUROTEP [Suspect]
     Indication: CANCER PAIN
     Route: 062
  3. METHOTREXATE [Suspect]
     Indication: DRUG USE FOR UNKNOWN INDICATION
  4. FLUOROURACIL [Suspect]
     Indication: DRUG USE FOR UNKNOWN INDICATION

REACTIONS (3)
  - BLOOD ALKALINE PHOSPHATASE INCREASED [None]
  - DRUG ADMINISTRATION ERROR [None]
  - LIVER FUNCTION TEST ABNORMAL [None]
